FAERS Safety Report 12961634 (Version 1)
Quarter: 2016Q4

REPORT INFORMATION
  Report Type: Spontaneous
  Country: JP (occurrence: JP)
  Receive Date: 20161121
  Receipt Date: 20161121
  Transmission Date: 20170207
  Serious: Yes (Life-Threatening, Hospitalization)
  Sender: FDA-Public Use
  Company Number: JP-ELI_LILLY_AND_COMPANY-JP201606007782

PATIENT
  Age: 72 Year
  Sex: Female
  Weight: 68 kg

DRUGS (10)
  1. NOVO HEPARIN [Suspect]
     Active Substance: HEPARIN SODIUM
     Dosage: UNK UNK, UNKNOWN
     Route: 065
  2. ARTIST [Concomitant]
     Active Substance: CARVEDILOL
     Indication: ACUTE MYOCARDIAL INFARCTION
     Dosage: 2.5 MG, QD
     Route: 048
     Dates: start: 20160423
  3. SEISHOKU [Concomitant]
     Active Substance: SODIUM CHLORIDE
     Dosage: UNK UNK, UNKNOWN
     Route: 042
     Dates: start: 20160423, end: 20160426
  4. ASPIRIN                            /00002701/ [Suspect]
     Active Substance: ASPIRIN
     Indication: ACUTE MYOCARDIAL INFARCTION
     Dosage: 100 MG, QD
     Route: 048
     Dates: start: 20160423, end: 20160509
  5. PRASUGREL HYDROCHLORIDE [Suspect]
     Active Substance: PRASUGREL HYDROCHLORIDE
     Dosage: 3.75 MG, QD
     Route: 048
     Dates: start: 20160424, end: 20160424
  6. PRASUGREL HYDROCHLORIDE [Suspect]
     Active Substance: PRASUGREL HYDROCHLORIDE
     Indication: ACUTE MYOCARDIAL INFARCTION
     Dosage: 20 MG, QD
     Route: 048
     Dates: start: 20160423
  7. NOVO HEPARIN [Suspect]
     Active Substance: HEPARIN SODIUM
     Indication: ACUTE MYOCARDIAL INFARCTION
     Dosage: 10000 IU, QD
     Route: 042
     Dates: start: 20160423, end: 20160425
  8. ATORVASTATIN [Concomitant]
     Active Substance: ATORVASTATIN
     Indication: ACUTE MYOCARDIAL INFARCTION
     Dosage: 10 MG, QD
     Route: 048
     Dates: start: 20160423
  9. COVERSYL                           /00790702/ [Concomitant]
     Active Substance: PERINDOPRIL
     Indication: ACUTE MYOCARDIAL INFARCTION
     Dosage: 4 MG, QD
     Route: 048
     Dates: start: 20160423
  10. NEXIUM [Concomitant]
     Active Substance: ESOMEPRAZOLE MAGNESIUM
     Indication: ULCER
     Dosage: 10 MG, QD
     Route: 048
     Dates: start: 20160423, end: 20160509

REACTIONS (3)
  - Aneurysm ruptured [Recovering/Resolving]
  - Intra-abdominal haemorrhage [Recovered/Resolved]
  - Underdose [Unknown]

NARRATIVE: CASE EVENT DATE: 20160424
